FAERS Safety Report 25930090 (Version 2)
Quarter: 2025Q4

REPORT INFORMATION
  Report Type: Spontaneous
  Country: US (occurrence: US)
  Receive Date: 20251016
  Receipt Date: 20251107
  Transmission Date: 20260118
  Serious: Yes (Other)
  Sender: ARGENX BVBA
  Company Number: US-ARGENX-2025-ARGX-US013918

PATIENT

DRUGS (3)
  1. VYVGART [Suspect]
     Active Substance: EFGARTIGIMOD ALFA-FCAB
     Indication: Myasthenia gravis
     Dosage: UNK
     Route: 042
     Dates: start: 202202
  2. OXYTOCIN [Concomitant]
     Active Substance: OXYTOCIN
     Indication: Product used for unknown indication
     Dosage: UNK
     Route: 065
  3. PYRIDOSTIGMINE [Concomitant]
     Active Substance: PYRIDOSTIGMINE
     Indication: Product used for unknown indication
     Dosage: UNK
     Route: 065
     Dates: start: 202202

REACTIONS (8)
  - Myasthenia gravis [Unknown]
  - Thymectomy [Unknown]
  - Premature rupture of membranes [Unknown]
  - Diarrhoea [Unknown]
  - Maternal exposure during pregnancy [Recovered/Resolved]
  - Therapy change [Unknown]
  - Inappropriate schedule of product administration [Unknown]
  - Insurance issue [Unknown]

NARRATIVE: CASE EVENT DATE: 20230101
